FAERS Safety Report 4902373-X (Version None)
Quarter: 2006Q1

REPORT INFORMATION
  Report Type: 
  Country: None (occurrence: None)
  Receive Date: 20060203
  Receipt Date: 20060203
  Transmission Date: 20060701
  Serious: Yes (Life-Threatening, Hospitalization)
  Sender: FDA-Public Use
  Company Number: None

PATIENT
  Sex: Female
  Weight: 58.0604 kg

DRUGS (2)
  1. PROTOPIC [Suspect]
     Indication: VITILIGO
     Dosage: PEA SIZED PORTION TWICE DAILY TOP
     Route: 061
     Dates: start: 20040401, end: 20040604
  2. PROTOPIC [Concomitant]

REACTIONS (2)
  - ACUTE MYELOID LEUKAEMIA [None]
  - BONE MARROW TRANSPLANT [None]
